FAERS Safety Report 21714664 (Version 1)
Quarter: 2022Q4

REPORT INFORMATION
  Report Type: Spontaneous
  Country: US (occurrence: None)
  Receive Date: 20221209
  Receipt Date: 20221209
  Transmission Date: 20230113
  Serious: Yes (Death, Hospitalization)
  Sender: FDA-Public Use
  Company Number: None

PATIENT
  Age: 39 Year
  Sex: Male
  Weight: 94.5 kg

DRUGS (1)
  1. CLOPIDOGREL [Suspect]
     Active Substance: CLOPIDOGREL BISULFATE
     Indication: Stent placement
     Dosage: OTHER QUANTITY : 8 TABLET(S);?OTHER FREQUENCY : 1X LOADING DOSE;?
     Route: 048
     Dates: start: 20221021, end: 20221021

REACTIONS (3)
  - Cerebral haemorrhage [None]
  - Sensory loss [None]
  - Cardiac arrest [None]

NARRATIVE: CASE EVENT DATE: 20221021
